FAERS Safety Report 12128176 (Version 2)
Quarter: 2016Q1

REPORT INFORMATION
  Report Type: Spontaneous
  Country: US (occurrence: US)
  Receive Date: 20160229
  Receipt Date: 20160301
  Transmission Date: 20160526
  Serious: Yes (Other)
  Sender: FDA-Public Use
  Company Number: US-SA-2016SA025559

PATIENT
  Sex: Female

DRUGS (3)
  1. IRBESARTAN. [Suspect]
     Active Substance: IRBESARTAN
     Dosage: SHE TOOK 150MG OF IRBESARTAN AT NIGHT 2 DAYS AGO AND THEN 75MG THE NEXT MORNING
     Route: 065
     Dates: start: 20160206, end: 20160206
  2. AVAPRO [Concomitant]
     Active Substance: IRBESARTAN
     Dates: start: 1971
  3. IRBESARTAN. [Suspect]
     Active Substance: IRBESARTAN
     Dosage: SHE TOOK 150MG OF IRBESARTAN AT NIGHT 2 DAYS AGO AND THEN 75MG THE NEXT MORNING
     Route: 065
     Dates: start: 20160207

REACTIONS (2)
  - Suicidal ideation [Unknown]
  - Throat tightness [Unknown]

NARRATIVE: CASE EVENT DATE: 201602
